FAERS Safety Report 6851255-5 (Version None)
Quarter: 2010Q3

REPORT INFORMATION
  Report Type: 
  Country: None (occurrence: None)
  Receive Date: 20100717
  Receipt Date: 20080111
  Transmission Date: 20110219
  Serious: No
  Sender: FDA-Public Use
  Company Number: US-PFIZER INC-2008006485

PATIENT
  Sex: Female
  Weight: 59.9 kg

DRUGS (5)
  1. CHANTIX [Suspect]
     Indication: SMOKING CESSATION THERAPY
     Route: 048
     Dates: start: 20080103
  2. PREMPRO [Concomitant]
  3. LUNESTA [Concomitant]
  4. ROBAXIN [Concomitant]
  5. ULTRAM [Concomitant]

REACTIONS (1)
  - FUNGAL INFECTION [None]
